FAERS Safety Report 24840473 (Version 1)
Quarter: 2025Q1

REPORT INFORMATION
  Report Type: Spontaneous
  Country: US (occurrence: None)
  Receive Date: 20250113
  Receipt Date: 20250113
  Transmission Date: 20250409
  Serious: Yes (Hospitalization)
  Sender: FDA-CTU
  Company Number: None

PATIENT
  Age: 54 Year
  Sex: Female

DRUGS (11)
  1. TACROLIMUS [Suspect]
     Active Substance: TACROLIMUS
     Indication: Lung transplant
     Dosage: FREQUENCY : TWICE A DAY;?
     Route: 048
     Dates: start: 20240325
  2. Aspirin 81 mg tabs [Concomitant]
  3. Atovaquone 750mg.5 ml susp [Concomitant]
  4. Azithromycin 250 mg tabs [Concomitant]
  5. Calcium citrate +D3 TABS [Concomitant]
  6. Melatonin 3 mg [Concomitant]
  7. Metocloperamide 10 mg tabs [Concomitant]
  8. Mirtazapine 15 mg tabs [Concomitant]
  9. Prednisone 5 mg tabs [Concomitant]
  10. Prevymis 480 mg tabs [Concomitant]
  11. Simethicone 80 mg chewables [Concomitant]

REACTIONS (2)
  - Pneumonia [None]
  - Colitis [None]

NARRATIVE: CASE EVENT DATE: 20241226
